FAERS Safety Report 9671414 (Version 1)
Quarter: 2013Q4

REPORT INFORMATION
  Report Type: Spontaneous
  Country: CA (occurrence: CA)
  Receive Date: 20131106
  Receipt Date: 20131106
  Transmission Date: 20140711
  Serious: Yes (Other)
  Sender: FDA-Public Use
  Company Number: CA-PFIZER INC-2013313964

PATIENT
  Sex: Male

DRUGS (3)
  1. LYRICA [Suspect]
     Dosage: 75 MG, 2X/DAY
  2. HYDROMORPHONE [Concomitant]
     Dosage: 18 MG, 2X/DAY
  3. HYDROMORPHONE [Concomitant]
     Dosage: 2 MG, EVERY 6 HOURS UP TO 4 DAILY

REACTIONS (7)
  - Drug dependence [Recovered/Resolved]
  - Insomnia [Recovered/Resolved]
  - Psychomotor hyperactivity [Recovered/Resolved]
  - Pain [Recovered/Resolved]
  - Osteoarthritis [Recovered/Resolved]
  - Nausea [Recovered/Resolved]
  - Restlessness [Recovered/Resolved]
